FAERS Safety Report 9100542 (Version 1)
Quarter: 2013Q1

REPORT INFORMATION
  Report Type: Spontaneous
  Country: US (occurrence: US)
  Receive Date: 20130215
  Receipt Date: 20130215
  Transmission Date: 20140127
  Serious: Yes (Other)
  Sender: FDA-Public Use
  Company Number: US-PFIZER INC-2013057109

PATIENT
  Sex: Female

DRUGS (1)
  1. SILVADENE [Suspect]
     Indication: SUTURE RELATED COMPLICATION
     Dosage: TWO TIMES A DAY
     Route: 061
     Dates: start: 20130208

REACTIONS (5)
  - Off label use [Unknown]
  - Skin necrosis [Not Recovered/Not Resolved]
  - Skin exfoliation [Not Recovered/Not Resolved]
  - Dry skin [Not Recovered/Not Resolved]
  - Erythema [Not Recovered/Not Resolved]
